FAERS Safety Report 13662843 (Version 2)
Quarter: 2017Q3

REPORT INFORMATION
  Report Type: Spontaneous
  Country: US (occurrence: US)
  Receive Date: 20170619
  Receipt Date: 20170725
  Transmission Date: 20171127
  Serious: No
  Sender: FDA-Public Use
  Company Number: US-BRISTOL-MYERS SQUIBB COMPANY-BMS-2017-052880

PATIENT
  Age: 79 Year
  Sex: Female
  Weight: 72.56 kg

DRUGS (1)
  1. ELIQUIS [Suspect]
     Active Substance: APIXABAN
     Indication: CEREBROVASCULAR ACCIDENT PROPHYLAXIS
     Dosage: 5 MG, BID
     Route: 048
     Dates: start: 20170412, end: 20170427

REACTIONS (7)
  - Hot flush [Unknown]
  - Lip erythema [Unknown]
  - Swelling [Recovered/Resolved]
  - Rash [Unknown]
  - Rash pruritic [Recovered/Resolved]
  - Lip swelling [Recovered/Resolved]
  - Swelling face [Not Recovered/Not Resolved]

NARRATIVE: CASE EVENT DATE: 20170428
